FAERS Safety Report 11540353 (Version 1)
Quarter: 2015Q3

REPORT INFORMATION
  Report Type: Spontaneous
  Country: US (occurrence: US)
  Receive Date: 20150923
  Receipt Date: 20150923
  Transmission Date: 20151125
  Serious: No
  Sender: FDA-Public Use
  Company Number: US-BEH-2014044258

PATIENT
  Sex: Female
  Weight: 59 kg

DRUGS (18)
  1. CYMBALTA [Concomitant]
     Active Substance: DULOXETINE HYDROCHLORIDE
  2. TRAMADOL. [Concomitant]
     Active Substance: TRAMADOL
  3. LMX [Concomitant]
     Active Substance: LIDOCAINE
  4. CALCIUM [Concomitant]
     Active Substance: CALCIUM
  5. CALCITONIN SALMON. [Concomitant]
     Active Substance: CALCITONIN SALMON
  6. OSTEO BI-FLEX [Concomitant]
     Active Substance: CHONDROITIN SULFATE A\GLUCOSAMINE
  7. VITAMIN D [Concomitant]
     Active Substance: CHOLECALCIFEROL
  8. SODIUM CHLORIDE. [Concomitant]
     Active Substance: SODIUM CHLORIDE
  9. NEXIUM [Concomitant]
     Active Substance: ESOMEPRAZOLE MAGNESIUM
  10. DIPHENHYDRAMINE. [Concomitant]
     Active Substance: DIPHENHYDRAMINE
  11. ACETAMINOPHEN. [Concomitant]
     Active Substance: ACETAMINOPHEN
  12. EPIPEN [Concomitant]
     Active Substance: EPINEPHRINE
  13. PRIVIGEN [Suspect]
     Active Substance: HUMAN IMMUNOGLOBULIN G
     Indication: HUMORAL IMMUNE DEFECT
     Dosage: 10 GM VIAL; STOP DATE: THERAPY WAS ONGOING;
     Route: 042
     Dates: start: 20141007
  14. MIRTAZAPINE. [Concomitant]
     Active Substance: MIRTAZAPINE
  15. BOTOX [Concomitant]
     Active Substance: ONABOTULINUMTOXINA
  16. PRIVIGEN [Suspect]
     Active Substance: HUMAN IMMUNOGLOBULIN G
     Indication: HUMORAL IMMUNE DEFECT
     Dosage: 10 GM VIAL; STOP DATE: THERAPY WAS ONGOING;
     Route: 042
     Dates: start: 20141007
  17. MELOXICAM. [Concomitant]
     Active Substance: MELOXICAM
  18. MULTIVITAMINS [Concomitant]
     Active Substance: VITAMINS

REACTIONS (2)
  - Fatigue [Recovered/Resolved]
  - Asthenia [Recovered/Resolved]
